FAERS Safety Report 21722442 (Version 1)
Quarter: 2022Q4

REPORT INFORMATION
  Report Type: Spontaneous
  Country: US (occurrence: None)
  Receive Date: 20221212
  Receipt Date: 20221212
  Transmission Date: 20230112
  Serious: No
  Sender: FDA-Public Use
  Company Number: None

PATIENT
  Sex: Male

DRUGS (1)
  1. HUMIRA [Suspect]
     Active Substance: ADALIMUMAB
     Indication: Uveitis
     Dosage: OTHER FREQUENCY : OTHER;?
     Route: 058

REACTIONS (4)
  - Device leakage [None]
  - Incorrect dose administered [None]
  - Ocular hyperaemia [None]
  - Eye swelling [None]
